FAERS Safety Report 26170814 (Version 1)
Quarter: 2025Q4

REPORT INFORMATION
  Report Type: Spontaneous
  Country: US (occurrence: US)
  Receive Date: 20251217
  Receipt Date: 20251217
  Transmission Date: 20260117
  Serious: Yes (Hospitalization)
  Sender: MYLAN
  Company Number: US-MYLANLABS-2025M1107343

PATIENT
  Age: 12 Year
  Sex: Female

DRUGS (1)
  1. FENTANYL [Suspect]
     Active Substance: FENTANYL
     Indication: Product used for unknown indication
     Dosage: UNK

REACTIONS (4)
  - Toxicity to various agents [Recovering/Resolving]
  - Nervous system disorder [Recovering/Resolving]
  - Apnoea [Recovering/Resolving]
  - Drug abuse [Recovering/Resolving]
